FAERS Safety Report 8918007 (Version 2)
Quarter: 2012Q4

REPORT INFORMATION
  Report Type: 
  Country: US (occurrence: US)
  Receive Date: 20121120
  Receipt Date: 20121129
  Transmission Date: 20130627
  Serious: Yes (Hospitalization, Other)
  Sender: FDA-Public Use
  Company Number: US-BAXTER-2012BAX023912

PATIENT
  Age: 55 Year
  Sex: Female

DRUGS (1)
  1. DIANEAL PD2 [Suspect]
     Indication: PERITONEAL DIALYSIS
     Route: 033

REACTIONS (7)
  - Umbilical hernia [Unknown]
  - Red blood cell count increased [Unknown]
  - White blood cell count increased [Unknown]
  - Bloody peritoneal effluent [Recovered/Resolved]
  - Peritonitis [Recovering/Resolving]
  - Dyspnoea [Recovered/Resolved]
  - Fluid retention [Recovered/Resolved]
